FAERS Safety Report 22343630 (Version 3)
Quarter: 2024Q2

REPORT INFORMATION
  Report Type: Report from Study
  Country: US (occurrence: US)
  Receive Date: 20230519
  Receipt Date: 20240625
  Transmission Date: 20240716
  Serious: Yes (Other)
  Sender: FDA-Public Use
  Company Number: US-ABBVIE-4771638

PATIENT
  Sex: Female

DRUGS (2)
  1. RINVOQ [Suspect]
     Active Substance: UPADACITINIB
     Indication: Rheumatoid arthritis
     Route: 048
     Dates: start: 20230310, end: 20240307
  2. RINVOQ [Suspect]
     Active Substance: UPADACITINIB
     Indication: Rheumatoid arthritis
     Dosage: LAST ADMIN DATE 2023
     Route: 048
     Dates: start: 202303

REACTIONS (11)
  - Oxygen saturation decreased [Recovering/Resolving]
  - Chest pain [Recovered/Resolved]
  - Back disorder [Unknown]
  - Peripheral swelling [Recovering/Resolving]
  - Peripheral swelling [Recovered/Resolved]
  - Insomnia [Recovering/Resolving]
  - Dyspnoea [Recovered/Resolved]
  - Swelling face [Recovered/Resolved]
  - Joint swelling [Recovering/Resolving]
  - Back pain [Recovering/Resolving]
  - Dyspnoea [Recovering/Resolving]
